FAERS Safety Report 23180641 (Version 2)
Quarter: 2024Q1

REPORT INFORMATION
  Report Type: Report from Study
  Country: ES (occurrence: ES)
  Receive Date: 20231114
  Receipt Date: 20240116
  Transmission Date: 20240410
  Serious: No
  Sender: FDA-Public Use
  Company Number: ES-ABBVIE-5489613

PATIENT
  Sex: Male

DRUGS (2)
  1. CARBIDOPA\LEVODOPA [Suspect]
     Active Substance: CARBIDOPA\LEVODOPA
     Indication: Parkinson^s disease
     Route: 050
     Dates: start: 20230420
  2. CARBIDOPA\LEVODOPA [Suspect]
     Active Substance: CARBIDOPA\LEVODOPA

REACTIONS (1)
  - Musculoskeletal discomfort [Recovering/Resolving]
